FAERS Safety Report 7824945-5 (Version None)
Quarter: 2011Q4

REPORT INFORMATION
  Report Type: 
  Country: None (occurrence: None)
  Receive Date: 20111019
  Receipt Date: 20110304
  Transmission Date: 20120403
  Serious: No
  Sender: FDA-Public Use
  Company Number: US-BRISTOL-MYERS SQUIBB COMPANY-15590367

PATIENT
  Sex: Male

DRUGS (1)
  1. AVALIDE [Suspect]
     Dosage: 1DF=300/25 MG. DOSE DECREASED TO 50/12.5.

REACTIONS (2)
  - OCULAR HYPERAEMIA [None]
  - HYPERTENSION [None]
